FAERS Safety Report 6058264-7 (Version None)
Quarter: 2009Q1

REPORT INFORMATION
  Report Type: 
  Country: None (occurrence: None)
  Receive Date: 20090121
  Receipt Date: 20090121
  Transmission Date: 20090719
  Serious: Yes (Hospitalization)
  Sender: FDA-Public Use
  Company Number: None

PATIENT
  Sex: Female
  Weight: 69.8 kg

DRUGS (2)
  1. CISPLATIN [Suspect]
     Dosage: 105 MG
  2. ETOPOSIDE [Suspect]
     Dosage: 630 MG

REACTIONS (11)
  - ANAEMIA [None]
  - DYSPNOEA [None]
  - HAEMOPTYSIS [None]
  - INFLAMMATION [None]
  - PLEURAL FIBROSIS [None]
  - RENAL FAILURE ACUTE [None]
  - RENAL TUBULAR NECROSIS [None]
  - SPUTUM DISCOLOURED [None]
  - THROMBOCYTOPENIA [None]
  - UPPER RESPIRATORY TRACT INFECTION [None]
  - WHEEZING [None]
